FAERS Safety Report 5543983-9 (Version None)
Quarter: 2007Q4

REPORT INFORMATION
  Report Type: 
  Country: None (occurrence: None)
  Receive Date: 20071210
  Receipt Date: 20070917
  Transmission Date: 20080405
  Serious: No
  Sender: FDA-Public Use
  Company Number: US-AMGEN-KDL195260

PATIENT
  Sex: Female

DRUGS (1)
  1. ENBREL [Suspect]
     Indication: RHEUMATOID ARTHRITIS
     Route: 058
     Dates: start: 20050315

REACTIONS (14)
  - ABDOMINAL PAIN UPPER [None]
  - ALOPECIA [None]
  - BURNING SENSATION MUCOSAL [None]
  - CHEST PAIN [None]
  - EPISTAXIS [None]
  - EYE DISORDER [None]
  - EYE PRURITUS [None]
  - EYE SWELLING [None]
  - JOINT INSTABILITY [None]
  - OCULAR HYPERAEMIA [None]
  - PARAESTHESIA [None]
  - RHEUMATOID ARTHRITIS [None]
  - SINUSITIS [None]
  - THROAT IRRITATION [None]
